FAERS Safety Report 7867116-9 (Version None)
Quarter: 2011Q4

REPORT INFORMATION
  Report Type: 
  Country: None (occurrence: None)
  Receive Date: 20111028
  Receipt Date: 20111021
  Transmission Date: 20120403
  Serious: Yes (Death, Life-Threatening, Hospitalization)
  Sender: FDA-Public Use
  Company Number: MX-BRISTOL-MYERS SQUIBB COMPANY-16185340

PATIENT
  Age: 48 Year
  Sex: Female
  Weight: 38 kg

DRUGS (7)
  1. ERBITUX [Suspect]
     Indication: HEAD AND NECK CANCER
     Dosage: 7-7OCT11;1DAY;1D OF CYC 1ONLY,14OCT11-ONG;250MG/M2 D1,8,15,VIAL,LAST DOSE:14OCT11,WKLY DOSE.
     Route: 042
     Dates: start: 20111007
  2. CISPLATIN [Suspect]
     Indication: HEAD AND NECK CANCER
     Dosage: 07OCT11-07OCT11,D1,LAST DOSE ON 14OCT11,WEEKLY DOSE
     Route: 042
     Dates: start: 20111007
  3. CARBAMAZEPINE [Concomitant]
     Indication: TUMOUR PAIN
     Dates: start: 20110814
  4. FLUOROURACIL [Suspect]
     Indication: HEAD AND NECK CANCER
     Dosage: D1-4,LAST DOSE ON 10OCT11(4DAYS).
     Route: 042
     Dates: start: 20111007
  5. ACETAMINOPHEN [Concomitant]
     Indication: TUMOUR PAIN
     Dates: start: 20110814
  6. DEXTROPROPOXIFEN [Concomitant]
     Indication: TUMOUR PAIN
     Dates: start: 20110814
  7. CLONAZEPAM [Concomitant]
     Indication: TUMOUR PAIN
     Dates: start: 20110814

REACTIONS (6)
  - NAUSEA [None]
  - VOMITING [None]
  - HYPOVOLAEMIC SHOCK [None]
  - HYPONATRAEMIA [None]
  - PANCYTOPENIA [None]
  - HAEMORRHAGE INTRACRANIAL [None]
